FAERS Safety Report 22618692 (Version 1)
Quarter: 2023Q2

REPORT INFORMATION
  Report Type: Spontaneous
  Country: US (occurrence: US)
  Receive Date: 20230620
  Receipt Date: 20230620
  Transmission Date: 20230722
  Serious: No
  Sender: FDA-Public Use
  Company Number: US-PFM-2023-00155

PATIENT
  Sex: Female
  Weight: 9.946 kg

DRUGS (1)
  1. HEMANGEOL [Suspect]
     Active Substance: PROPRANOLOL HYDROCHLORIDE
     Indication: Haemangioma
     Dosage: 2.3 ML, BID (2/DAY), AT LEAST 9 HOURS APART AS DIRECTED
     Route: 048

REACTIONS (1)
  - Illness [Unknown]
